FAERS Safety Report 21171081 (Version 1)
Quarter: 2022Q3

REPORT INFORMATION
  Report Type: Report from Study
  Country: ES (occurrence: ES)
  Receive Date: 20220804
  Receipt Date: 20220804
  Transmission Date: 20221026
  Serious: Yes (Other)
  Sender: FDA-Public Use
  Company Number: ES-SA-SAC20220802001225

PATIENT
  Age: 57 Year
  Sex: Male
  Weight: 88.5 kg

DRUGS (1)
  1. INSULIN GLARGINE [Suspect]
     Active Substance: INSULIN GLARGINE
     Indication: Type 2 diabetes mellitus
     Dosage: 64 IU, QD
     Route: 058
     Dates: start: 20220725

REACTIONS (6)
  - Blood pressure increased [Recovered/Resolved]
  - Conjunctival haemorrhage [Not Recovered/Not Resolved]
  - Effusion [Unknown]
  - Haematoma [Unknown]
  - Injection site bruising [Unknown]
  - Product storage error [Unknown]
